FAERS Safety Report 23079344 (Version 1)
Quarter: 2023Q4

REPORT INFORMATION
  Report Type: Spontaneous
  Country: US (occurrence: US)
  Receive Date: 20231018
  Receipt Date: 20231018
  Transmission Date: 20240110
  Serious: No
  Sender: FDA-Public Use
  Company Number: US-INCYTE CORPORATION-2023IN010614

PATIENT

DRUGS (1)
  1. JAKAFI [Suspect]
     Active Substance: RUXOLITINIB
     Dosage: UNK (FROM 2 YEAR)
     Route: 065
     Dates: start: 2021

REACTIONS (4)
  - Wound [Unknown]
  - Skin discolouration [Unknown]
  - Illness [Unknown]
  - Nausea [Unknown]
